FAERS Safety Report 5372730-9 (Version None)
Quarter: 2007Q2

REPORT INFORMATION
  Report Type: 
  Country: None (occurrence: None)
  Receive Date: 20070619
  Receipt Date: 20070220
  Transmission Date: 20071010
  Serious: Yes (Hospitalization)
  Sender: FDA-Public Use
  Company Number: WAES 0703USA00258

PATIENT
  Age: 76 Year
  Sex: Female

DRUGS (16)
  1. COZAAR [Suspect]
     Dosage: 50 MG/DAILY/PO
     Route: 048
     Dates: start: 20010724, end: 20011001
  2. CLONIDINE [Suspect]
  3. ALLOPURINOL [Suspect]
  4. NITROGLYCERIN [Suspect]
  5. DETROL [Concomitant]
  6. PREMARIN [Concomitant]
  7. RELAFEN [Concomitant]
  8. TAGAMET [Concomitant]
  9. THYROXIN [Concomitant]
  10. ZAROXOLYN [Concomitant]
  11. ZOLOFT [Concomitant]
  12. ZYRTEC [Concomitant]
  13. FUROSEMIDE [Concomitant]
  14. NAPROXEN [Concomitant]
  15. POASSIUM (UNSPECIFIED) [Concomitant]
  16. PREDNISONE [Concomitant]

REACTIONS (3)
  - CANDIDIASIS [None]
  - ORAL SOFT TISSUE DISORDER [None]
  - RASH GENERALISED [None]
